FAERS Safety Report 10902147 (Version 1)
Quarter: 2015Q1

REPORT INFORMATION
  Report Type: Spontaneous
  Country: GB (occurrence: GB)
  Receive Date: 20150310
  Receipt Date: 20150310
  Transmission Date: 20150721
  Serious: Yes (Other)
  Sender: FDA-Public Use
  Company Number: GB-PFIZER INC-2015078705

PATIENT
  Sex: Female

DRUGS (16)
  1. CITALOPRAM [Suspect]
     Active Substance: CITALOPRAM HYDROBROMIDE
     Dosage: 30 MG IN THE MORNING
     Route: 065
  2. LAMICTAL [Suspect]
     Active Substance: LAMOTRIGINE
     Dosage: 250 MG, 2X/DAY (250 MG, BD)
  3. CITALOPRAM [Suspect]
     Active Substance: CITALOPRAM HYDROBROMIDE
     Indication: DEPRESSION
     Dosage: 40 MG, UNK
     Route: 065
     Dates: end: 201208
  4. LAMICTAL [Suspect]
     Active Substance: LAMOTRIGINE
     Dosage: 500 MG, DAILY
  5. TEGRETOL [Suspect]
     Active Substance: CARBAMAZEPINE
     Indication: EPILEPSY
     Dosage: 1200 MG DAILY (400 MG IN MORNING AND 800 MG AT NIGHT)
     Route: 065
  6. KEPPRA [Suspect]
     Active Substance: LEVETIRACETAM
     Indication: EPILEPSY
     Dosage: 250 MG, 1X/DAY
     Route: 065
  7. CITALOPRAM [Suspect]
     Active Substance: CITALOPRAM HYDROBROMIDE
     Indication: ANXIETY
     Dosage: 10 MG, UNK
     Route: 065
     Dates: start: 201303
  8. LAMICTAL [Suspect]
     Active Substance: LAMOTRIGINE
     Indication: EPILEPSY
     Dosage: 100MG TWICE DAILY (100 MG TABLET (2 EVERY MORNING AND 2 EVERY EVENING)))
     Route: 065
  9. MOMETASONE [Concomitant]
     Active Substance: MOMETASONE
     Dosage: 2 DF, 1X/DAY (2 SPRAYS DAILY)
     Route: 045
  10. CITALOPRAM [Suspect]
     Active Substance: CITALOPRAM HYDROBROMIDE
     Dosage: 20 MG 1X/DAY (QD)
     Route: 065
     Dates: start: 201309
  11. LAMICTAL [Suspect]
     Active Substance: LAMOTRIGINE
     Dosage: 50MG TWICE DAILY ((50 MG TABLET (1 IN MORNING AND 1 IN EVENING))
     Route: 065
  12. LYRICA [Suspect]
     Active Substance: PREGABALIN
     Dosage: 300 MG, UNK
     Route: 065
  13. LAMICTAL [Suspect]
     Active Substance: LAMOTRIGINE
     Dosage: 550 MG, 1X/DAY (550 MG, QD)
  14. CYCLOGEST [Concomitant]
     Active Substance: PROGESTERONE
     Dosage: 1 DF, 1X/DAY (1 DF, QD)
     Route: 065
  15. FERROUS FUMARATE [Concomitant]
     Active Substance: FERROUS FUMARATE
     Dosage: 1 DF, 3X/DAY (1 DF, TID)
     Route: 065
  16. LYRICA [Suspect]
     Active Substance: PREGABALIN
     Indication: PERIODIC LIMB MOVEMENT DISORDER
     Dosage: 150 MG, UNK
     Route: 065

REACTIONS (13)
  - Cognitive disorder [Unknown]
  - Osteopenia [Unknown]
  - Depression [Unknown]
  - Hippocampal sclerosis [Unknown]
  - Periodic limb movement disorder [Unknown]
  - Sleep disorder [Unknown]
  - Seizure [Unknown]
  - Initial insomnia [Unknown]
  - Middle insomnia [Unknown]
  - Anxiety [Unknown]
  - Temporal lobe epilepsy [Unknown]
  - Insomnia [Unknown]
  - Aura [Unknown]
